FAERS Safety Report 9086179 (Version 1)
Quarter: 2013Q1

REPORT INFORMATION
  Report Type: Spontaneous
  Country: US (occurrence: US)
  Receive Date: 20130131
  Receipt Date: 20130131
  Transmission Date: 20140127
  Serious: Yes (Hospitalization, Other)
  Sender: FDA-Public Use
  Company Number: US-PFIZER INC-2013038856

PATIENT
  Age: 35 Year
  Sex: Female

DRUGS (9)
  1. LYRICA [Suspect]
     Dosage: UNK
  2. REBIF [Suspect]
     Dosage: 44MCG THREE TIMES PER WEEK
     Route: 058
     Dates: start: 20110523
  3. POTASSIUM [Concomitant]
     Dosage: UNK
  4. CALCIUM [Concomitant]
     Dosage: UNK
  5. MAGNESIUM [Concomitant]
     Dosage: UNK
  6. FENTANYL [Concomitant]
     Indication: PAIN
     Dosage: UNK
  7. TIZANIDINE [Concomitant]
     Indication: MUSCLE SPASMS
     Dosage: UNK
  8. AMBIEN [Concomitant]
     Indication: SLEEP DISORDER
     Dosage: UNK
  9. ADDERALL [Concomitant]
     Indication: FATIGUE
     Dosage: UNK

REACTIONS (4)
  - Renal failure [Unknown]
  - Gastric ulcer haemorrhage [Unknown]
  - Gait disturbance [Unknown]
  - Fatigue [Unknown]
